FAERS Safety Report 10426661 (Version 1)
Quarter: 2014Q3

REPORT INFORMATION
  Report Type: Spontaneous
  Country: US (occurrence: None)
  Receive Date: 20140722
  Receipt Date: 20140722
  Transmission Date: 20150326
  Serious: No
  Sender: FDA-Public Use
  Company Number: AEGR000530

PATIENT
  Age: 50 Year
  Sex: Male
  Weight: 86.2 kg

DRUGS (6)
  1. JUXTAPID [Suspect]
     Active Substance: LOMITAPIDE MESYLATE
     Indication: TYPE IIA HYPERLIPIDAEMIA
     Route: 048
     Dates: start: 20131211, end: 20140121
  2. PRINIVIL (LISINOPRIL DIHYDRATE) [Concomitant]
  3. WELCHOL (COLESEVELAM HYDROCHLORIDE) [Concomitant]
  4. POTASSIUM CHLORIDE (POTASSIUM CHLORIDE) [Concomitant]
     Active Substance: POTASSIUM CHLORIDE
  5. ASPIRIN (ACETYLSALICYLIC ACID) [Concomitant]
     Active Substance: ASPIRIN
  6. AMLODIPINE (AMLODIPINE BESILATE) [Concomitant]

REACTIONS (4)
  - Fatigue [None]
  - Weight decreased [None]
  - Depressed mood [None]
  - Muscle atrophy [None]
